FAERS Safety Report 16125673 (Version 1)
Quarter: 2019Q1

REPORT INFORMATION
  Report Type: Spontaneous
  Country: FR (occurrence: FR)
  Receive Date: 20190328
  Receipt Date: 20190328
  Transmission Date: 20190418
  Serious: Yes (Death, Congenital Anomaly)
  Sender: FDA-Public Use
  Company Number: FR-TEVA-2018-FR-987298

PATIENT
  Sex: Male

DRUGS (2)
  1. PAROXETINE. [Suspect]
     Active Substance: PAROXETINE
     Indication: DEPRESSION
     Dosage: 20 MILLIGRAM DAILY;
     Route: 064
     Dates: start: 20181016, end: 20181206
  2. CHLORHYDRATE DE CITALOPRAM [Suspect]
     Active Substance: CITALOPRAM HYDROCHLORIDE
     Indication: DEPRESSION
     Dosage: 1 DOSAGE FORMS DAILY;
     Route: 064
     Dates: start: 20180421, end: 20181015

REACTIONS (2)
  - Craniofacial deformity [Fatal]
  - Abortion induced [Fatal]

NARRATIVE: CASE EVENT DATE: 20181120
